FAERS Safety Report 11771066 (Version 1)
Quarter: 2015Q4

REPORT INFORMATION
  Report Type: Report from Study
  Country: US (occurrence: US)
  Receive Date: 20151124
  Receipt Date: 20151124
  Transmission Date: 20160304
  Serious: Yes (Other)
  Sender: FDA-Public Use
  Company Number: US-AMGEN-USASL2015121658

PATIENT
  Age: 50 Year
  Sex: Female

DRUGS (1)
  1. ENBREL [Suspect]
     Active Substance: ETANERCEPT
     Indication: RHEUMATOID ARTHRITIS
     Dosage: 50 MG, UNK
     Route: 065
     Dates: start: 201411

REACTIONS (9)
  - Malaise [Unknown]
  - Injection site pruritus [Unknown]
  - Sciatica [Not Recovered/Not Resolved]
  - Pericarditis [Unknown]
  - Influenza [Unknown]
  - Injection site haemorrhage [Unknown]
  - Wrong technique in product usage process [Unknown]
  - Injection site urticaria [Unknown]
  - Injection site pain [Unknown]

NARRATIVE: CASE EVENT DATE: 201412
